FAERS Safety Report 8512881-0 (Version None)
Quarter: 2012Q3

REPORT INFORMATION
  Report Type: 
  Country: None (occurrence: None)
  Receive Date: 20120716
  Receipt Date: 20120525
  Transmission Date: 20120928
  Serious: Yes (Hospitalization, Other)
  Sender: FDA-Public Use
  Company Number: CH-009507513-2012SP025755

PATIENT
  Age: 36 Year
  Sex: Female

DRUGS (10)
  1. FLUOXETINE HCL [Suspect]
     Indication: DEPRESSION
     Dosage: 20 MG, QD
     Route: 048
     Dates: start: 20111101
  2. ZOLPIDEM TARTRATE [Suspect]
     Indication: DEPRESSION
     Dosage: 12.5 MG, QD
     Route: 048
     Dates: start: 20111201
  3. MIRTAZAPINE [Suspect]
     Indication: DEPRESSION
     Dosage: 30 MG, QD
     Route: 048
     Dates: start: 20111101
  4. POTASSIUM CHLORIDE [Concomitant]
     Indication: PRODUCT USED FOR UNKNOWN INDICATION
     Dosage: SINCE MONTHS
     Route: 065
     Dates: end: 20111229
  5. ZINC (UNSPECIFIED) [Concomitant]
     Indication: PRODUCT USED FOR UNKNOWN INDICATION
     Dosage: 1 DF, QD
     Route: 065
     Dates: start: 20111123
  6. PANTOPRAZOLE [Concomitant]
     Indication: PRODUCT USED FOR UNKNOWN INDICATION
     Dosage: SINCE MONTHS
     Route: 065
  7. VALTREX [Concomitant]
     Indication: CHEMOTHERAPY
     Dosage: SINCE MONTHS
     Route: 065
  8. MOTILIUM [Concomitant]
     Indication: PRODUCT USED FOR UNKNOWN INDICATION
     Dosage: 30 MG, QD
     Route: 065
     Dates: start: 20111129
  9. PURINETHOL [Concomitant]
     Indication: CHEMOTHERAPY
     Dosage: SINCE MONTHS
     Route: 065
  10. SULFAMETHOXAZOLE AND TRIMETHOPRIM [Concomitant]
     Indication: CHEMOTHERAPY
     Dosage: SINCE MONTHS
     Route: 065

REACTIONS (7)
  - LEUKAEMIA [None]
  - DISSOCIATIVE FUGUE [None]
  - AGRANULOCYTOSIS [None]
  - LEUKOPENIA [None]
  - OVERDOSE [None]
  - PORIOMANIA [None]
  - SUICIDE ATTEMPT [None]
